FAERS Safety Report 10406798 (Version 5)
Quarter: 2014Q4

REPORT INFORMATION
  Report Type: Report from Study
  Country: JP (occurrence: JP)
  Receive Date: 20140825
  Receipt Date: 20141030
  Transmission Date: 20150528
  Serious: Yes (Hospitalization)
  Sender: FDA-Public Use
  Company Number: JP-PFIZER INC-2014230903

PATIENT
  Age: 70 Year
  Sex: Male
  Weight: 44.5 kg

DRUGS (8)
  1. AMLODIN [Concomitant]
     Active Substance: AMLODIPINE BESYLATE
     Dosage: 5 MG, 1X/DAY
     Route: 048
     Dates: start: 20140222, end: 20140302
  2. AMLODIN [Concomitant]
     Active Substance: AMLODIPINE BESYLATE
     Dosage: 2.5 MG, 1X/DAY
     Route: 048
     Dates: start: 20140324, end: 20140412
  3. TRAMAL [Concomitant]
     Active Substance: TRAMADOL
     Dosage: 75 MG, UNK
     Dates: start: 20140324
  4. AXITINIB [Suspect]
     Active Substance: AXITINIB
     Dosage: 5 MG, 2X/DAY (10 MG)
     Route: 048
     Dates: start: 20140324, end: 20140406
  5. AMLODIN [Concomitant]
     Active Substance: AMLODIPINE BESYLATE
     Dosage: 2.5 MG, 1X/DAY
     Route: 048
     Dates: start: 20140219, end: 20140221
  6. TRAMAL [Concomitant]
     Active Substance: TRAMADOL
     Dosage: 100 MG, UNK
     Dates: start: 20140219
  7. AXITINIB [Suspect]
     Active Substance: AXITINIB
     Indication: METASTATIC RENAL CELL CARCINOMA
     Dosage: 5 MG, 2X/DAY (10 MG)
     Route: 048
     Dates: start: 20140218, end: 20140222
  8. AXITINIB [Suspect]
     Active Substance: AXITINIB
     Dosage: 5 MG, 2X/DAY
     Route: 048
     Dates: start: 20140223, end: 20140302

REACTIONS (1)
  - Postoperative wound infection [Recovered/Resolved]

NARRATIVE: CASE EVENT DATE: 20140406
